FAERS Safety Report 20745209 (Version 1)
Quarter: 2022Q2

REPORT INFORMATION
  Report Type: Spontaneous
  Country: CN (occurrence: CN)
  Receive Date: 20220425
  Receipt Date: 20220425
  Transmission Date: 20220720
  Serious: Yes (Other)
  Sender: FDA-Public Use
  Company Number: CN-NOVARTISPH-NVSC2022CN092323

PATIENT
  Age: 35 Year
  Sex: Male
  Weight: 83 kg

DRUGS (16)
  1. SIMULECT [Suspect]
     Active Substance: BASILIXIMAB
     Indication: Renal transplant
     Dosage: 20 MG (DAY 0, DAY 4)
     Route: 065
  2. METHYLPREDNISOLONE [Concomitant]
     Active Substance: METHYLPREDNISOLONE
     Indication: Product used for unknown indication
     Dosage: 800 MG (DURING SURGERY)
     Route: 065
  3. METHYLPREDNISOLONE [Concomitant]
     Active Substance: METHYLPREDNISOLONE
     Dosage: 300 MG (3 DAYS AFTER SURGERY)
     Route: 065
  4. THYMOCYTE IMMUNE GLOBULIN NOS [Concomitant]
     Active Substance: THYMOCYTE IMMUNE GLOBULIN NOS
     Indication: Product used for unknown indication
     Dosage: 50 MG (FOR 3 DAYS)
     Route: 065
     Dates: start: 20210104, end: 20210106
  5. VALCYTE [Concomitant]
     Active Substance: VALGANCICLOVIR HYDROCHLORIDE
     Indication: Product used for unknown indication
     Dosage: UNK
     Route: 065
     Dates: start: 20210114
  6. PENICILLIN [Concomitant]
     Active Substance: PENICILLIN
     Indication: Product used for unknown indication
     Dosage: UNK (KB/MIC FRACTION 8/16, MIC 64, R)
     Route: 065
  7. AMPICILLIN [Concomitant]
     Active Substance: AMPICILLIN
     Indication: Product used for unknown indication
     Dosage: UNK (KB/MIC FRACTION 8/16, MIC 32, R)
     Route: 065
  8. STREPTOMYCIN [Concomitant]
     Active Substance: STREPTOMYCIN SULFATE
     Indication: Product used for unknown indication
     Dosage: UNK (2000 SYNERGISTIC, S)
     Route: 065
  9. GENTAMICIN [Concomitant]
     Active Substance: GENTAMICIN
     Indication: Product used for unknown indication
     Dosage: UNK (500 SYNERGISTIC, S)
     Route: 065
  10. CIPROFLOXACIN [Concomitant]
     Active Substance: CIPROFLOXACIN
     Indication: Product used for unknown indication
     Dosage: UNK (KB/MIC FRACTION 1-2/4, MIC 8, R)
     Route: 065
  11. LEVOFLOXACIN [Concomitant]
     Active Substance: LEVOFLOXACIN
     Indication: Product used for unknown indication
     Dosage: UNK (KB/MIC FRACTION 2-4/8, MIC 8, R)
     Route: 065
  12. TETRACYCLINE [Concomitant]
     Active Substance: TETRACYCLINE
     Indication: Product used for unknown indication
     Dosage: UNK (KB/MIC FRACTION 4-8/16, MIC 16, R)
     Route: 065
  13. TIGECYCLINE [Concomitant]
     Active Substance: TIGECYCLINE
     Indication: Product used for unknown indication
     Dosage: UNK (KB/MIC FRACTION 0.25, MIC 0.12, S)
     Route: 065
  14. VANCOMYCIN [Concomitant]
     Active Substance: VANCOMYCIN
     Indication: Product used for unknown indication
     Dosage: UNK (KB/MIC FRACTION 4-8/32, MIC 0.5, S)
     Route: 065
  15. TEICOPLANIN [Concomitant]
     Active Substance: TEICOPLANIN
     Indication: Product used for unknown indication
     Dosage: UNK (KB/MIC FRACTION 10-11-13/14, KB 19, S)
     Route: 065
  16. NITROFURANTOIN [Concomitant]
     Active Substance: NITROFURANTOIN
     Indication: Product used for unknown indication
     Dosage: UNK (KB/MIC FRACTION 32-64/128, MIC 128, R)
     Route: 065

REACTIONS (15)
  - Thrombotic microangiopathy [Unknown]
  - Enterococcal infection [Unknown]
  - IgA nephropathy [Unknown]
  - End stage renal disease [Unknown]
  - White blood cell disorder [Unknown]
  - Blood creatinine increased [Unknown]
  - Blood potassium increased [Unknown]
  - Hypertension [Unknown]
  - Cytomegalovirus infection [Unknown]
  - Haemoglobin decreased [Unknown]
  - Proteinuria [Unknown]
  - Oliguria [Unknown]
  - Herpes zoster [Unknown]
  - Pain in extremity [Unknown]
  - Pyrexia [Unknown]

NARRATIVE: CASE EVENT DATE: 20210111
